FAERS Safety Report 8243582-4 (Version None)
Quarter: 2012Q1

REPORT INFORMATION
  Report Type: 
  Country: None (occurrence: None)
  Receive Date: 20120329
  Receipt Date: 20120323
  Transmission Date: 20120608
  Serious: Yes (Life-Threatening, Other)
  Sender: FDA-Public Use
  Company Number: GB-ELI_LILLY_AND_COMPANY-GB201203006787

PATIENT
  Age: 59 Year
  Sex: Female
  Weight: 124 kg

DRUGS (9)
  1. AMLODIPINE [Concomitant]
  2. DOXAZOSIN MESYLATE [Concomitant]
  3. EXENATIDE LONG ACTING RELEASE [Suspect]
     Dosage: 2 MG, UNK
     Route: 058
     Dates: start: 20120101, end: 20120319
  4. LISINOPRIL [Concomitant]
     Dosage: UNK
  5. BISOPROLOL FUMARATE [Concomitant]
  6. ALLOPURINOL [Concomitant]
  7. FUROSEMIDE [Concomitant]
  8. GLICLAZIDE [Concomitant]
  9. METFORMIN HCL [Concomitant]

REACTIONS (4)
  - DIARRHOEA [None]
  - VOMITING [None]
  - HYPERKALAEMIA [None]
  - RENAL FAILURE ACUTE [None]
